FAERS Safety Report 4983671-0 (Version None)
Quarter: 2006Q2

REPORT INFORMATION
  Report Type: 
  Country: None (occurrence: None)
  Receive Date: 20060425
  Receipt Date: 20060425
  Transmission Date: 20061013
  Serious: Yes (Hospitalization)
  Sender: FDA-Public Use
  Company Number: None

PATIENT
  Sex: Male

DRUGS (8)
  1. LISINOPRIL [Suspect]
     Indication: HYPERTENSION
     Dosage: 10 MG DAILY
  2. GEMFIBROZIL [Suspect]
     Indication: HYPERLIPIDAEMIA
     Dosage: 600 BID
  3. OMEPRAZOLE [Concomitant]
  4. METOPROLOL SUCCINATE [Concomitant]
  5. FELODIPINE [Concomitant]
  6. CITALOPRAM [Concomitant]
  7. SIMVASTATIN [Concomitant]
  8. INTERFERON [Concomitant]

REACTIONS (2)
  - OEDEMA [None]
  - SWELLING FACE [None]
